FAERS Safety Report 14629393 (Version 1)
Quarter: 2018Q1

REPORT INFORMATION
  Report Type: Spontaneous
  Country: US (occurrence: US)
  Receive Date: 20180313
  Receipt Date: 20180313
  Transmission Date: 20180509
  Serious: Yes (Hospitalization, Other)
  Sender: FDA-Public Use
  Company Number: US-ABBVIE-18P-163-2281153-00

PATIENT
  Age: 64 Year
  Sex: Female

DRUGS (10)
  1. CYMBALTA [Concomitant]
     Active Substance: DULOXETINE HYDROCHLORIDE
     Indication: PRODUCT USED FOR UNKNOWN INDICATION
     Route: 065
  2. ZYPREXA [Concomitant]
     Active Substance: OLANZAPINE
     Indication: PRODUCT USED FOR UNKNOWN INDICATION
     Route: 065
  3. RISPERDAL [Concomitant]
     Active Substance: RISPERIDONE
     Indication: PRODUCT USED FOR UNKNOWN INDICATION
     Route: 065
  4. DEPAKOTE ER [Suspect]
     Active Substance: DIVALPROEX SODIUM
     Indication: BIPOLAR DISORDER
     Route: 048
     Dates: start: 2011, end: 201801
  5. ATIVAN [Concomitant]
     Active Substance: LORAZEPAM
     Indication: PRODUCT USED FOR UNKNOWN INDICATION
     Route: 065
  6. DEPAKOTE [Suspect]
     Active Substance: DIVALPROEX SODIUM
     Indication: BIPOLAR DISORDER
     Dosage: 4 TABS TWICE A DAY
     Route: 048
     Dates: start: 201801, end: 201802
  7. DEPAKOTE [Suspect]
     Active Substance: DIVALPROEX SODIUM
     Dosage: 500MG IN AM AND 750 MG IN PM
     Route: 048
     Dates: start: 201802
  8. METFORMIN [Concomitant]
     Active Substance: METFORMIN HYDROCHLORIDE
     Indication: DIABETES MELLITUS
     Route: 065
  9. DEPAKOTE [Suspect]
     Active Substance: DIVALPROEX SODIUM
     Dosage: 4 TABS IN AM AND 4 TABS IN PM
     Route: 048
     Dates: start: 201802, end: 201802
  10. ATORVASTATIN [Concomitant]
     Active Substance: ATORVASTATIN
     Indication: BLOOD CHOLESTEROL INCREASED
     Route: 065

REACTIONS (10)
  - Mental impairment [Recovering/Resolving]
  - Atrial fibrillation [Not Recovered/Not Resolved]
  - Impaired self-care [Recovering/Resolving]
  - Neuroleptic malignant syndrome [Recovering/Resolving]
  - Memory impairment [Recovering/Resolving]
  - Mania [Recovered/Resolved]
  - Dysphagia [Unknown]
  - Anticonvulsant drug level decreased [Recovered/Resolved]
  - Gait inability [Recovering/Resolving]
  - Anticonvulsant drug level abnormal [Not Recovered/Not Resolved]

NARRATIVE: CASE EVENT DATE: 201801
